FAERS Safety Report 7150113-9 (Version None)
Quarter: 2010Q4

REPORT INFORMATION
  Report Type: 
  Country: None (occurrence: None)
  Receive Date: 20101109
  Receipt Date: 20101109
  Transmission Date: 20110411
  Serious: Yes (Hospitalization, Other)
  Sender: FDA-Public Use
  Company Number: 018144

PATIENT
  Sex: Female
  Weight: 41.5 kg

DRUGS (2)
  1. CIMZIA [Suspect]
     Indication: OFF LABEL USE
     Dosage: (400 MG 1X/MONTH SUBCUTANEOUS), (SUBCUTANEOUS)
     Route: 058
     Dates: start: 20100112
  2. ENTOCORT EC [Concomitant]

REACTIONS (2)
  - ANAL ABSCESS [None]
  - SINUSITIS [None]
